FAERS Safety Report 7706356-6 (Version None)
Quarter: 2011Q3

REPORT INFORMATION
  Report Type: 
  Country: None (occurrence: None)
  Receive Date: 20110824
  Receipt Date: 20110808
  Transmission Date: 20111222
  Serious: Yes (Hospitalization)
  Sender: FDA-Public Use
  Company Number: CA-JNJFOC-20110805114

PATIENT
  Sex: Female
  Weight: 30 kg

DRUGS (8)
  1. PREDNISONE [Concomitant]
  2. VANCOMYCIN HCL [Concomitant]
  3. LANSOPRAZOLE [Concomitant]
  4. VITAMIN D [Concomitant]
  5. MESALAMINE [Concomitant]
     Route: 054
  6. HYDROCORTISONE [Concomitant]
  7. SULFASALAZINE [Concomitant]
  8. REMICADE [Suspect]
     Indication: CROHN'S DISEASE
     Route: 042
     Dates: start: 20110519

REACTIONS (1)
  - CROHN'S DISEASE [None]
